FAERS Safety Report 8043596-3 (Version None)
Quarter: 2012Q1

REPORT INFORMATION
  Report Type: 
  Country: None (occurrence: None)
  Receive Date: 20120112
  Receipt Date: 20111220
  Transmission Date: 20120608
  Serious: Yes (Other)
  Sender: FDA-Public Use
  Company Number: IE-ELI_LILLY_AND_COMPANY-IE201112006434

PATIENT
  Age: 41 Year
  Sex: Female

DRUGS (4)
  1. VARENICLINE TARTRATE [Concomitant]
     Dosage: UNK
     Route: 058
     Dates: start: 20100801
  2. PROZAC [Suspect]
     Dosage: UNK UNK, UNKNOWN
  3. VARENICLINE TARTRATE [Concomitant]
     Dosage: UNK
     Route: 058
     Dates: start: 20101001
  4. PROZAC [Suspect]
     Dosage: 40 MG, UNK

REACTIONS (7)
  - AMNESIA [None]
  - COGNITIVE DISORDER [None]
  - DRUG INTERACTION [None]
  - INTENTIONAL DRUG MISUSE [None]
  - DISORIENTATION [None]
  - AGGRESSION [None]
  - OVERDOSE [None]
